FAERS Safety Report 18337534 (Version 1)
Quarter: 2020Q4

REPORT INFORMATION
  Report Type: Report from Study
  Country: None (occurrence: US)
  Receive Date: 20201002
  Receipt Date: 20201002
  Transmission Date: 20210113
  Serious: Yes (Other)
  Sender: FDA-Public Use
  Company Number: US-ABBVIE-20K-163-3585114-00

PATIENT
  Age: 39 Year
  Sex: Male

DRUGS (3)
  1. HUMIRA [Suspect]
     Active Substance: ADALIMUMAB
     Route: 058
  2. HUMIRA [Suspect]
     Active Substance: ADALIMUMAB
     Indication: PSORIATIC ARTHROPATHY
     Route: 058
     Dates: start: 20191203
  3. GABAPENTIN. [Suspect]
     Active Substance: GABAPENTIN
     Indication: PRODUCT USED FOR UNKNOWN INDICATION
     Route: 065

REACTIONS (20)
  - Swelling [Unknown]
  - Nodule [Unknown]
  - Pain [Unknown]
  - Pain [Unknown]
  - Photophobia [Unknown]
  - Walking aid user [Unknown]
  - Arthralgia [Unknown]
  - Psychomotor hyperactivity [Unknown]
  - Sinusitis [Unknown]
  - Loss of consciousness [Unknown]
  - Fluid retention [Unknown]
  - Dizziness [Unknown]
  - Chest pain [Unknown]
  - Gait disturbance [Unknown]
  - Sensory disturbance [Unknown]
  - Impaired driving ability [Unknown]
  - Therapeutic response shortened [Unknown]
  - Arthritis [Unknown]
  - Mobility decreased [Unknown]
  - Unevaluable event [Unknown]

NARRATIVE: CASE EVENT DATE: 20200707
